FAERS Safety Report 7058547-8 (Version None)
Quarter: 2010Q4

REPORT INFORMATION
  Report Type: 
  Country: None (occurrence: None)
  Receive Date: 20101022
  Receipt Date: 20101015
  Transmission Date: 20110411
  Serious: Yes (Hospitalization)
  Sender: FDA-Public Use
  Company Number: A0810214A

PATIENT
  Age: 36 Year
  Sex: Female

DRUGS (9)
  1. AVANDIA [Suspect]
     Dosage: 4MG TWICE PER DAY
     Route: 048
     Dates: start: 20010101, end: 20080301
  2. LEXAPRO [Concomitant]
  3. FOLIC ACID [Concomitant]
  4. ROZEREM [Concomitant]
  5. TRAMADOL [Concomitant]
  6. PHENTERMINE [Concomitant]
  7. NABUMETONE [Concomitant]
  8. HYDROXYZINE [Concomitant]
  9. OXYBUTYNIN [Concomitant]

REACTIONS (1)
  - CEREBROVASCULAR ACCIDENT [None]
